FAERS Safety Report 13702362 (Version 2)
Quarter: 2017Q3

REPORT INFORMATION
  Report Type: Spontaneous
  Country: US (occurrence: US)
  Receive Date: 20170629
  Receipt Date: 20170707
  Transmission Date: 20171127
  Serious: Yes (Other)
  Sender: FDA-Public Use
  Company Number: US-SA-2017SA116092

PATIENT

DRUGS (3)
  1. ALIROCUMAB PREFILLED PEN [Concomitant]
     Active Substance: ALIROCUMAB
     Dates: end: 20161019
  2. PRALUENT [Suspect]
     Active Substance: ALIROCUMAB
     Dosage: STRENGTH- 75MG/ML; 150MG/ML?ONE STARTING SHOT TAKEN
     Route: 058
     Dates: start: 2016, end: 2016
  3. PRALUENT [Suspect]
     Active Substance: ALIROCUMAB
     Dosage: 6 SHOTS TAKEN STARTING FROM 2ND SHOT
     Route: 058
     Dates: end: 20161019

REACTIONS (3)
  - Injection site discolouration [Not Recovered/Not Resolved]
  - Cerebrovascular accident [Unknown]
  - Fall [Unknown]

NARRATIVE: CASE EVENT DATE: 20161019
